FAERS Safety Report 15565078 (Version 1)
Quarter: 2018Q4

REPORT INFORMATION
  Report Type: Spontaneous
  Country: US (occurrence: US)
  Receive Date: 20181030
  Receipt Date: 20181030
  Transmission Date: 20190205
  Serious: Yes (Hospitalization)
  Sender: FDA-Public Use
  Company Number: US-TAKEDA-2018TUS031029

PATIENT

DRUGS (1)
  1. PONATINIB [Suspect]
     Active Substance: PONATINIB
     Indication: SQUAMOUS CELL CARCINOMA OF LUNG
     Dosage: 45 MG, QD
     Route: 048
     Dates: start: 20160817

REACTIONS (14)
  - Atrial fibrillation [Unknown]
  - Asthenia [Unknown]
  - Cough [Unknown]
  - Rash [Unknown]
  - Alopecia [Unknown]
  - Hyponatraemia [Unknown]
  - Myalgia [Unknown]
  - Dry skin [Unknown]
  - Fatigue [Unknown]
  - Pyrexia [Unknown]
  - Headache [Unknown]
  - Hypertension [Unknown]
  - Somnolence [Unknown]
  - Oedema [Unknown]
